FAERS Safety Report 24948947 (Version 1)
Quarter: 2025Q1

REPORT INFORMATION
  Report Type: Spontaneous
  Country: CA (occurrence: CA)
  Receive Date: 20250210
  Receipt Date: 20250210
  Transmission Date: 20250408
  Serious: Yes (Hospitalization, Other)
  Sender: PFIZER
  Company Number: CA-PFIZER INC-202500026976

PATIENT
  Age: 57 Year
  Sex: Female

DRUGS (13)
  1. PALBOCICLIB [Suspect]
     Active Substance: PALBOCICLIB
     Indication: Chemotherapy
     Dosage: 250 MG, 1X/DAY
     Route: 048
  2. PALBOCICLIB [Suspect]
     Active Substance: PALBOCICLIB
     Indication: Chemotherapy
     Dosage: 250 MG, 1X/DAY
     Route: 048
  3. DOCETAXEL [Suspect]
     Active Substance: DOCETAXEL
     Indication: Chemotherapy
     Route: 042
  4. CAPECITABINE [Suspect]
     Active Substance: CAPECITABINE
     Indication: Breast cancer female
     Route: 065
  5. ERIBULIN [Suspect]
     Active Substance: ERIBULIN
     Indication: Chemotherapy
     Route: 042
  6. ERIBULIN [Suspect]
     Active Substance: ERIBULIN
     Route: 042
  7. FULVESTRANT [Suspect]
     Active Substance: FULVESTRANT
     Indication: Chemotherapy
     Route: 030
  8. GEMCITABINE HYDROCHLORIDE [Suspect]
     Active Substance: GEMCITABINE HYDROCHLORIDE
     Indication: Chemotherapy
     Route: 065
  9. LETROZOLE [Suspect]
     Active Substance: LETROZOLE
     Indication: Breast cancer female
     Dosage: 5 MG, DAILY
     Route: 048
  10. TAMOXIFEN CITRATE [Suspect]
     Active Substance: TAMOXIFEN CITRATE
     Indication: Chemotherapy
     Dosage: 40 MG, 1X/DAY
     Route: 048
  11. TAMOXIFEN CITRATE [Suspect]
     Active Substance: TAMOXIFEN CITRATE
     Dosage: 40 MG, 1X/DAY
     Route: 048
  12. TAXOL [Suspect]
     Active Substance: PACLITAXEL
     Route: 042
  13. VINORELBINE TARTRATE [Suspect]
     Active Substance: VINORELBINE TARTRATE
     Indication: Chemotherapy
     Route: 065

REACTIONS (3)
  - Neuropathy peripheral [Unknown]
  - Neoplasm progression [Unknown]
  - Off label use [Unknown]
